FAERS Safety Report 9773953 (Version 1)
Quarter: 2013Q4

REPORT INFORMATION
  Report Type: Spontaneous
  Country: US (occurrence: US)
  Receive Date: 20131220
  Receipt Date: 20131220
  Transmission Date: 20140711
  Serious: Yes (Hospitalization)
  Sender: FDA-Public Use
  Company Number: US-BIOGENIDEC-2013BI042608

PATIENT
  Age: 26 Year
  Sex: Female
  Weight: 69 kg

DRUGS (5)
  1. TYSABRI [Suspect]
     Indication: MULTIPLE SCLEROSIS
     Route: 042
     Dates: start: 20120126, end: 20130205
  2. AVONEX [Concomitant]
     Route: 030
  3. MAXIMUM D3 [Concomitant]
     Route: 048
  4. NEURIM [Concomitant]
     Route: 058
  5. SUPPORT LIQUID [Concomitant]
     Route: 048

REACTIONS (1)
  - Caesarean section [Recovered/Resolved]
